FAERS Safety Report 13969374 (Version 2)
Quarter: 2018Q1

REPORT INFORMATION
  Report Type: Spontaneous
  Country: AU (occurrence: AU)
  Receive Date: 20170914
  Receipt Date: 20180223
  Transmission Date: 20180508
  Serious: Yes (Hospitalization)
  Sender: FDA-Public Use
  Company Number: AU-FRESENIUS KABI-FK201707762

PATIENT
  Age: 44 Year
  Sex: Male

DRUGS (1)
  1. PARACETAMOL (MANUFACTURER UNKNOWN) [Suspect]
     Active Substance: ACETAMINOPHEN
     Indication: PRODUCT USED FOR UNKNOWN INDICATION
     Route: 065

REACTIONS (9)
  - Hypotension [Unknown]
  - Hypothermia [Unknown]
  - Metabolic acidosis [Unknown]
  - Acidosis [Unknown]
  - Mitochondrial toxicity [Unknown]
  - Hyperglycaemia [Unknown]
  - Intentional overdose [Unknown]
  - Loss of consciousness [Unknown]
  - Altered state of consciousness [Unknown]
